FAERS Safety Report 23526958 (Version 2)
Quarter: 2024Q1

REPORT INFORMATION
  Report Type: Spontaneous
  Country: SK (occurrence: SK)
  Receive Date: 20240215
  Receipt Date: 20240225
  Transmission Date: 20240410
  Serious: Yes (Death, Other)
  Sender: FDA-Public Use
  Company Number: SK-BoehringerIngelheim-2023-BI-222964

PATIENT
  Age: 65 Year
  Sex: Male

DRUGS (6)
  1. OFEV [Suspect]
     Active Substance: NINTEDANIB
     Indication: Idiopathic pulmonary fibrosis
     Dates: start: 20211124, end: 202212
  2. OFEV [Suspect]
     Active Substance: NINTEDANIB
     Dates: start: 202212
  3. BRAFTOVI [Concomitant]
     Active Substance: ENCORAFENIB
     Indication: Malignant melanoma
     Dosage: 1X1
  4. KEYTRUDA [Concomitant]
     Active Substance: PEMBROLIZUMAB
     Indication: Neoplasm malignant
     Dates: start: 202211
  5. KEYTRUDA [Concomitant]
     Active Substance: PEMBROLIZUMAB
     Dates: start: 20230223
  6. MEKTOVI [Concomitant]
     Active Substance: BINIMETINIB
     Indication: Malignant melanoma
     Dosage: 1X1
     Dates: start: 20231011

REACTIONS (5)
  - Pneumonia [Fatal]
  - Sepsis [Fatal]
  - Sudden death [Fatal]
  - Metastases to neck [Unknown]
  - Diarrhoea [Recovered/Resolved]

NARRATIVE: CASE EVENT DATE: 20221201
